FAERS Safety Report 25249676 (Version 1)
Quarter: 2025Q2

REPORT INFORMATION
  Report Type: Spontaneous
  Country: FR (occurrence: FR)
  Receive Date: 20250429
  Receipt Date: 20250429
  Transmission Date: 20250716
  Serious: Yes (Hospitalization)
  Sender: CHEPLAPHARM
  Company Number: None

PATIENT
  Age: 46 Year
  Sex: Female

DRUGS (6)
  1. QUETIAPINE [Suspect]
     Active Substance: QUETIAPINE
     Indication: Bipolar disorder
     Dosage: DAILY DOSE: 600 MILLIGRAM
     Dates: start: 20250226
  2. QUETIAPINE [Suspect]
     Active Substance: QUETIAPINE
     Indication: Bipolar disorder
     Dosage: 7.5 MG/DAY STARTING MARCH 10, 2025, THEN 15 MG/DAY 15 DAYS LATER?DAILY DOSE: 300 MILLIGRAM
     Route: 048
     Dates: start: 20250310
  3. QUETIAPINE [Suspect]
     Active Substance: QUETIAPINE
     Dosage: DAILY DOSE: 700 MILLIGRAM
     Route: 048
     Dates: start: 20200730, end: 20250226
  4. LITHIUM [Concomitant]
     Active Substance: LITHIUM
     Dosage: IN THE EVENING?DAILY DOSE: 2.5 MILLIGRAM
  5. LEVOTHYROXINE [Concomitant]
     Active Substance: LEVOTHYROXINE
  6. TROPATEPINE [Concomitant]
     Active Substance: TROPATEPINE
     Dosage: IN THE MORNING?DAILY DOSE: 1 MILLIGRAM

REACTIONS (2)
  - Mania [Recovering/Resolving]
  - Product supply issue [Recovering/Resolving]

NARRATIVE: CASE EVENT DATE: 20250226
